FAERS Safety Report 16006069 (Version 1)
Quarter: 2019Q1

REPORT INFORMATION
  Report Type: Spontaneous
  Country: US (occurrence: US)
  Receive Date: 20190226
  Receipt Date: 20190226
  Transmission Date: 20190418
  Serious: No
  Sender: FDA-Public Use
  Company Number: None

PATIENT
  Age: 50 Year
  Sex: Male
  Weight: 76.5 kg

DRUGS (1)
  1. JUST CBD CANNABIDIOL GUMMIES GUMMY BEARS 250MG [Suspect]
     Active Substance: CANNABIDIOL
     Indication: ANXIETY
     Dosage: ?          QUANTITY:1 GUMMY BEAR;OTHER FREQUENCY:NO IDEA;??
     Route: 048
     Dates: start: 20190211, end: 20190212

REACTIONS (1)
  - Product formulation issue [None]

NARRATIVE: CASE EVENT DATE: 20190215
